FAERS Safety Report 10913533 (Version 1)
Quarter: 2015Q1

REPORT INFORMATION
  Report Type: Spontaneous
  Country: US (occurrence: None)
  Receive Date: 20150310
  Receipt Date: 20150310
  Transmission Date: 20150721
  Serious: Yes (Hospitalization)
  Sender: FDA-Public Use
  Company Number: None

PATIENT
  Age: 62 Year
  Sex: Male
  Weight: 75 kg

DRUGS (7)
  1. CHOLECALCIFEROL (VITAMIN D) [Concomitant]
  2. MULTIPLE VITAMIN (MULTI-VITAMIN) [Concomitant]
  3. FLUOXETINE (PROZAC) [Concomitant]
  4. ASPIRIN 81 MG [Suspect]
     Active Substance: ASPIRIN
     Indication: CAROTID ENDARTERECTOMY
     Route: 048
  5. CLOPIDOGREL [Suspect]
     Active Substance: CLOPIDOGREL BISULFATE
     Indication: CAROTID ENDARTERECTOMY
     Route: 048
  6. SIMVASTATIN (ZOCOR) [Concomitant]
  7. VALSARTAN (DIOVAN) [Concomitant]

REACTIONS (6)
  - Asthenia [None]
  - Diverticulum intestinal [None]
  - Dizziness [None]
  - Haemoglobin decreased [None]
  - Gastrointestinal haemorrhage [None]
  - Fall [None]

NARRATIVE: CASE EVENT DATE: 20140514
